FAERS Safety Report 10896954 (Version 1)
Quarter: 2015Q1

REPORT INFORMATION
  Report Type: Spontaneous
  Country: US (occurrence: None)
  Receive Date: 20150302
  Receipt Date: 20150302
  Transmission Date: 20150721
  Serious: Yes (Other)
  Sender: FDA-Public Use
  Company Number: None

PATIENT
  Age: 50 Year
  Sex: Female

DRUGS (5)
  1. CIPROFLOXACIN. [Suspect]
     Active Substance: CIPROFLOXACIN
     Indication: ABDOMINAL DISTENSION
     Dosage: 1 PILL TWICE DAILY TAKEN BY MOUTH
     Route: 048
  2. PROBIOTICS [Concomitant]
     Active Substance: PROBIOTICS NOS
  3. MAGNESIUM [Concomitant]
     Active Substance: MAGNESIUM
  4. CIPROFLOXACIN. [Suspect]
     Active Substance: CIPROFLOXACIN
     Indication: ERUCTATION
     Dosage: 1 PILL TWICE DAILY TAKEN BY MOUTH
     Route: 048
  5. CIPROFLOXACIN. [Suspect]
     Active Substance: CIPROFLOXACIN
     Indication: FLATULENCE
     Dosage: 1 PILL TWICE DAILY TAKEN BY MOUTH
     Route: 048

REACTIONS (7)
  - Rotator cuff syndrome [None]
  - Tendon pain [None]
  - Nervous system disorder [None]
  - Fall [None]
  - Joint injury [None]
  - Joint dislocation [None]
  - Tendon rupture [None]

NARRATIVE: CASE EVENT DATE: 20141110
